FAERS Safety Report 8231828-8 (Version None)
Quarter: 2012Q1

REPORT INFORMATION
  Report Type: 
  Country: None (occurrence: None)
  Receive Date: 20120323
  Receipt Date: 20120319
  Transmission Date: 20120608
  Serious: No
  Sender: FDA-Public Use
  Company Number: US-PFIZER INC-2012041333

PATIENT
  Sex: Female
  Weight: 58.957 kg

DRUGS (2)
  1. EFFEXOR XR [Suspect]
     Indication: DEPRESSION
     Dosage: 150 MG, DAILY
     Dates: start: 20100101, end: 20120213
  2. AMITRIPTYLINE [Concomitant]
     Indication: CYSTITIS INTERSTITIAL
     Dosage: UNK,DAILY

REACTIONS (4)
  - PHOTOPSIA [None]
  - DIZZINESS [None]
  - ANGER [None]
  - DEPRESSED MOOD [None]
